FAERS Safety Report 4804123-4 (Version None)
Quarter: 2005Q4

REPORT INFORMATION
  Report Type: 
  Country: None (occurrence: None)
  Receive Date: 20051014
  Receipt Date: 20050922
  Transmission Date: 20060501
  Serious: Yes (Other)
  Sender: FDA-Public Use
  Company Number: 2005-10-0383

PATIENT
  Sex: Male

DRUGS (2)
  1. CELESTONE (BETAMETHASONE SODIUM PHOSPHATE) INJECTABLE  ^LIKE CELESTONE [Suspect]
     Indication: PAIN MANAGEMENT
     Dosage: EPIDURAL/ONCE
     Route: 008
  2. UNSPECIFIED THERAPEUTIC AGENT [Suspect]
     Indication: PAIN
     Dosage: EPIDURAL
     Route: 008

REACTIONS (3)
  - ARACHNOIDITIS [None]
  - DRUG INEFFECTIVE [None]
  - INJECTION SITE REACTION [None]
